FAERS Safety Report 20629655 (Version 1)
Quarter: 2022Q1

REPORT INFORMATION
  Report Type: Spontaneous
  Country: RU (occurrence: RU)
  Receive Date: 20220323
  Receipt Date: 20220323
  Transmission Date: 20220424
  Serious: Yes (Life-Threatening)
  Sender: FDA-Public Use
  Company Number: RU-BoehringerIngelheim-2022-BI-159345

PATIENT
  Age: 84 Year
  Sex: Male
  Weight: 80 kg

DRUGS (7)
  1. ALTEPLASE [Suspect]
     Active Substance: ALTEPLASE
     Indication: Ischaemic stroke
     Dosage: 7.2 MG - BOLUS
     Route: 040
     Dates: start: 20220314
  2. ALTEPLASE [Suspect]
     Active Substance: ALTEPLASE
     Dosage: 64.8 MG - INFUSION DURING 1 HOUR MOST RECENT DOSE ON 14/MAR/2022.
     Route: 042
  3. PRADAXA [Suspect]
     Active Substance: DABIGATRAN ETEXILATE MESYLATE
     Indication: Atrial fibrillation
     Route: 048
     Dates: end: 20220314
  4. NAFTOPIDIL [Suspect]
     Active Substance: NAFTOPIDIL
     Indication: Hypertension
     Route: 065
     Dates: start: 20220314, end: 20220314
  5. DIGOXIN [Concomitant]
     Active Substance: DIGOXIN
     Indication: Tachycardia paroxysmal
     Route: 048
     Dates: end: 20220314
  6. SPIRONOLACTONE [Concomitant]
     Active Substance: SPIRONOLACTONE
     Indication: Product used for unknown indication
     Dates: end: 20220314
  7. TORSEMIDE [Concomitant]
     Active Substance: TORSEMIDE
     Indication: Product used for unknown indication
     Dates: end: 20220314

REACTIONS (4)
  - Haemorrhagic transformation stroke [Not Recovered/Not Resolved]
  - Hypertension [Recovered/Resolved]
  - Haematoma [Not Recovered/Not Resolved]
  - Ischaemic stroke [Not Recovered/Not Resolved]

NARRATIVE: CASE EVENT DATE: 20220314
